FAERS Safety Report 14147469 (Version 1)
Quarter: 2017Q4

REPORT INFORMATION
  Report Type: Spontaneous
  Country: IT (occurrence: IT)
  Receive Date: 20171031
  Receipt Date: 20171031
  Transmission Date: 20180321
  Serious: Yes (Hospitalization)
  Sender: FDA-Public Use
  Company Number: IT-BAYER-2017-209517

PATIENT
  Age: 69 Year
  Sex: Male
  Weight: 67 kg

DRUGS (7)
  1. CIPROFLOXACIN. [Suspect]
     Active Substance: CIPROFLOXACIN
     Indication: PYREXIA
     Dosage: 750 MG, QD
     Route: 048
     Dates: start: 20140702, end: 20140707
  2. VOLTAREN [Suspect]
     Active Substance: DICLOFENAC SODIUM
     Indication: DERMATITIS ATOPIC
     Dosage: UNK
     Route: 061
     Dates: start: 20140530, end: 20140601
  3. NEODUPLAMOX [Suspect]
     Active Substance: AMOXICILLIN\CLAVULANATE POTASSIUM
     Indication: PYREXIA
     Dosage: 2 G, QD
     Route: 048
     Dates: start: 20140617, end: 20140701
  4. ALLOPURINOL. [Suspect]
     Active Substance: ALLOPURINOL
     Indication: OEDEMA PERIPHERAL
     Dosage: 150 MG, QD
     Route: 048
     Dates: start: 20140616, end: 20140710
  5. CARDIOASPIRIN 100 MG [Suspect]
     Active Substance: ASPIRIN
     Indication: OEDEMA PERIPHERAL
     Dosage: 100 MG, QD
     Route: 048
     Dates: start: 20140616, end: 20140710
  6. DECODERM [Suspect]
     Active Substance: FLUPREDNIDENE ACETATE
     Indication: DERMATITIS ATOPIC
     Dosage: 1 DF, QD
     Route: 061
     Dates: start: 20140609, end: 20140615
  7. NADROPARIN CALCIUM [Suspect]
     Active Substance: NADROPARIN CALCIUM
     Indication: OEDEMA PERIPHERAL
     Dosage: 3800 IU, QD
     Route: 058
     Dates: start: 20140616, end: 20140630

REACTIONS (2)
  - Oedema [Recovered/Resolved]
  - Cutaneous vasculitis [Recovered/Resolved]

NARRATIVE: CASE EVENT DATE: 20140710
